FAERS Safety Report 14065386 (Version 4)
Quarter: 2017Q4

REPORT INFORMATION
  Report Type: Spontaneous
  Country: US (occurrence: US)
  Receive Date: 20171009
  Receipt Date: 20171130
  Transmission Date: 20180321
  Serious: Yes (Other)
  Sender: FDA-Public Use
  Company Number: US-NAPPMUNDI-USA-2017-0141106

PATIENT
  Age: 61 Year
  Sex: Male
  Weight: 54.42 kg

DRUGS (2)
  1. BUTRANS [Suspect]
     Active Substance: BUPRENORPHINE
     Indication: PAIN
  2. BUTRANS [Suspect]
     Active Substance: BUPRENORPHINE
     Indication: NECK PAIN
     Dosage: 20 MCG/HR, WEEKLY
     Route: 062
     Dates: start: 20170928

REACTIONS (12)
  - Ocular hyperaemia [Recovered/Resolved]
  - Unevaluable event [Unknown]
  - Thrombosis [Unknown]
  - Vein collapse [Unknown]
  - Flushing [Not Recovered/Not Resolved]
  - Pulmonary thrombosis [Unknown]
  - Psychomotor hyperactivity [Recovered/Resolved]
  - Drug effect decreased [Not Recovered/Not Resolved]
  - Product adhesion issue [Unknown]
  - Drug level increased [Not Recovered/Not Resolved]
  - Swelling face [Not Recovered/Not Resolved]
  - Euphoric mood [Unknown]

NARRATIVE: CASE EVENT DATE: 201709
